FAERS Safety Report 6652923-0 (Version None)
Quarter: 2010Q1

REPORT INFORMATION
  Report Type: 
  Country: None (occurrence: None)
  Receive Date: 20100326
  Receipt Date: 20091218
  Transmission Date: 20100710
  Serious: Yes (Other)
  Sender: FDA-Public Use
  Company Number: US-JNJFOC-20090803016

PATIENT
  Sex: Male

DRUGS (4)
  1. LEVAQUIN [Suspect]
     Indication: DIVERTICULITIS
     Dosage: 10 DAYS
     Route: 048
  2. LEVAQUIN [Suspect]
     Indication: SINUSITIS
     Dosage: 10 DAYS
     Route: 048
  3. CIPRO [Suspect]
     Indication: DIVERTICULITIS
     Route: 065
  4. FLAGYL [Concomitant]
     Indication: BACTERIAL INFECTION
     Route: 065

REACTIONS (3)
  - BURSITIS [None]
  - TENDON RUPTURE [None]
  - TENDONITIS [None]
